FAERS Safety Report 5332383-2 (Version None)
Quarter: 2007Q2

REPORT INFORMATION
  Report Type: 
  Country: None (occurrence: None)
  Receive Date: 20070523
  Receipt Date: 20070516
  Transmission Date: 20071010
  Serious: Yes (Other)
  Sender: FDA-Public Use
  Company Number: B0471809A

PATIENT
  Sex: Male

DRUGS (4)
  1. AVANDAMET [Suspect]
  2. AVANDIA [Suspect]
     Indication: DRUG USE FOR UNKNOWN INDICATION
  3. METFORMIN HCL [Concomitant]
  4. METHADONE HCL [Concomitant]

REACTIONS (1)
  - VISION BLURRED [None]
